FAERS Safety Report 4761366-6 (Version None)
Quarter: 2005Q3

REPORT INFORMATION
  Report Type: 
  Country: None (occurrence: None)
  Receive Date: 20050831
  Receipt Date: 20050615
  Transmission Date: 20060218
  Serious: No
  Sender: FDA-Public Use
  Company Number: PHEH2005US06820

PATIENT
  Age: 78 Year
  Sex: Female

DRUGS (7)
  1. ENABLEX [Suspect]
     Indication: HYPERTONIC BLADDER
     Dosage: 15 MG, QD; 7.5 MG, QD
     Dates: start: 20050501
  2. CELEBREX [Concomitant]
  3. CARDURA XL (DOXAZOSIN MESILATE) [Concomitant]
  4. MIACALCIN [Concomitant]
  5. NEXIUM [Concomitant]
  6. POTASSIUM SUPPLEMENTS (POTASSIUM) [Concomitant]
  7. LIPITOR [Concomitant]

REACTIONS (2)
  - DRUG INEFFECTIVE [None]
  - HAIR COLOUR CHANGES [None]
